FAERS Safety Report 10137482 (Version 1)
Quarter: 2014Q2

REPORT INFORMATION
  Report Type: Spontaneous
  Country: US (occurrence: None)
  Receive Date: 20140428
  Receipt Date: 20140428
  Transmission Date: 20141212
  Serious: No
  Sender: FDA-Public Use
  Company Number: None

PATIENT
  Age: 29 Year
  Sex: Female

DRUGS (1)
  1. ACANYA [Suspect]
     Indication: ACNE
     Route: 061
     Dates: start: 20140427, end: 20140427

REACTIONS (5)
  - Pruritus [None]
  - Swelling [None]
  - Erythema [None]
  - Swelling face [None]
  - Hypersensitivity [None]
